FAERS Safety Report 5483146-9 (Version None)
Quarter: 2007Q4

REPORT INFORMATION
  Report Type: 
  Country: None (occurrence: None)
  Receive Date: 20071005
  Receipt Date: 20070919
  Transmission Date: 20080405
  Serious: Yes (Other)
  Sender: FDA-Public Use
  Company Number: CAO07001188

PATIENT
  Age: 25 Year
  Sex: Female
  Weight: 65.8 kg

DRUGS (2)
  1. METAMUCIL-2 [Suspect]
     Indication: CONSTIPATION
     Dosage: 5 CAPSUL, 1 /DAY OR 2 DAYS, ORAL
     Route: 048
     Dates: start: 20070711, end: 20070712
  2. INSULIN [Concomitant]

REACTIONS (2)
  - CHEST PAIN [None]
  - HYPERSENSITIVITY [None]
